FAERS Safety Report 7376673-0 (Version None)
Quarter: 2011Q1

REPORT INFORMATION
  Report Type: 
  Country: None (occurrence: None)
  Receive Date: 20110317
  Receipt Date: 20110302
  Transmission Date: 20110831
  Serious: Yes (Hospitalization)
  Sender: FDA-Public Use
  Company Number: GER/USA/11/0017688

PATIENT
  Age: 42 Year
  Sex: Female

DRUGS (7)
  1. LIDOCAINE [Suspect]
     Indication: PRODUCT USED FOR UNKNOWN INDICATION
     Dosage: NASAL
     Route: 045
  2. FENTANYL [Suspect]
     Indication: SEDATIVE THERAPY
     Dosage: 100 MCG, SINGLE DOSE, INTRAVENOUS
     Route: 042
  3. CARVEDILOL [Suspect]
     Indication: PRODUCT USED FOR UNKNOWN INDICATION
     Dosage: 12.5 MG, 1 IN 1 ORAL
     Route: 048
  4. PHENYLEPHRINE (PHENYLEPHRINE) [Suspect]
     Indication: PRODUCT USED FOR UNKNOWN INDICATION
     Dosage: NASAL
     Route: 045
  5. MIDAZOLAM (MIDAZOLAM) [Suspect]
     Indication: SEDATIVE THERAPY
     Dosage: 2 MG, 1 D, INTRAVENOUS  (NOT  OTHERWISE SPECIFIED)
     Route: 042
  6. THIOPENTAL SODIUM [Suspect]
     Indication: GENERAL ANAESTHESIA
     Dosage: 250 MG, SINGLE DOSE
  7. SEVOFLURANE [Suspect]
     Indication: GENERAL ANAESTHESIA
     Dosage: 1.5 %, RESPIRATORY
     Route: 055

REACTIONS (3)
  - PRE-ECLAMPSIA [None]
  - DRUG EXPOSURE DURING PREGNANCY [None]
  - CAESAREAN SECTION [None]
